FAERS Safety Report 7276531-6 (Version None)
Quarter: 2011Q1

REPORT INFORMATION
  Report Type: 
  Country: None (occurrence: None)
  Receive Date: 20110204
  Receipt Date: 20110125
  Transmission Date: 20110831
  Serious: Yes (Other)
  Sender: FDA-Public Use
  Company Number: GB-BAYER-2011-010245

PATIENT
  Age: 91 Year
  Sex: Male

DRUGS (1)
  1. ASPRO CLEAR [Suspect]
     Dosage: UNK
     Dates: end: 20101201

REACTIONS (3)
  - PROSTATE CANCER [None]
  - DEVICE ISSUE [None]
  - MEDICAL DEVICE IMPLANTATION [None]
